FAERS Safety Report 7870540 (Version 9)
Quarter: 2012Q4

REPORT INFORMATION
  Report Type: 
  Country: US (occurrence: US)
  Receive Date: 20110325
  Receipt Date: 20120911
  Transmission Date: 20130627
  Serious: Yes (Hospitalization)
  Sender: FDA-Public Use
  Company Number: US-BIOGENIDEC-2011BI009224

PATIENT
  Age: 42 Year
  Sex: Female

DRUGS (1)
  1. TYSABRI [Suspect]
     Indication: MULTIPLE SCLEROSIS
     Route: 042
     Dates: start: 20100419, end: 20110228

REACTIONS (5)
  - Progressive multifocal leukoencephalopathy [Unknown]
  - Headache [Recovered/Resolved]
  - Multiple sclerosis [Recovered/Resolved]
  - Bladder disorder [Unknown]
  - Gastrointestinal disorder [Unknown]
